FAERS Safety Report 19300821 (Version 1)
Quarter: 2021Q2

REPORT INFORMATION
  Report Type: Spontaneous
  Country: US (occurrence: US)
  Receive Date: 20210525
  Receipt Date: 20210525
  Transmission Date: 20210717
  Serious: No
  Sender: FDA-Public Use
  Company Number: US-SA-2021SA168412

PATIENT
  Age: 57 Year
  Sex: Female

DRUGS (19)
  1. CEFDINIR. [Concomitant]
     Active Substance: CEFDINIR
  2. TIZANIDINE HCL [Concomitant]
     Active Substance: TIZANIDINE HYDROCHLORIDE
  3. TIZANIDINE. [Concomitant]
     Active Substance: TIZANIDINE
  4. BUPROPION. [Concomitant]
     Active Substance: BUPROPION
  5. STIOLTO RESPIMAT [Concomitant]
     Active Substance: OLODATEROL HYDROCHLORIDE\TIOTROPIUM BROMIDE MONOHYDRATE
  6. CHLORZOXAZON [Concomitant]
     Active Substance: CHLORZOXAZONE
  7. COLCHICINE. [Concomitant]
     Active Substance: COLCHICINE
  8. DUPIXENT [Suspect]
     Active Substance: DUPILUMAB
     Indication: ASTHMA
     Dosage: 300 MG, QOW
     Route: 058
  9. ALBUTEROL [SALBUTAMOL SULFATE] [Concomitant]
     Active Substance: ALBUTEROL SULFATE
  10. ACETAMINOPHEN. [Concomitant]
     Active Substance: ACETAMINOPHEN
  11. BUDESONIDE. [Concomitant]
     Active Substance: BUDESONIDE
  12. DICLOFENAC [Concomitant]
     Active Substance: DICLOFENAC
  13. DICLOFENAC [Concomitant]
     Active Substance: DICLOFENAC
  14. HYDROCODONE [Concomitant]
     Active Substance: HYDROCODONE
  15. LEVOCETIRIZIN [Concomitant]
     Active Substance: LEVOCETIRIZINE DIHYDROCHLORIDE
  16. NORTRIPTYLIN [Concomitant]
     Active Substance: NORTRIPTYLINE
  17. NYSTATIN. [Concomitant]
     Active Substance: NYSTATIN
  18. PROMETHAZINE [Concomitant]
     Active Substance: PROMETHAZINE HYDROCHLORIDE
  19. VENTOLIN HFA [Concomitant]
     Active Substance: ALBUTEROL SULFATE

REACTIONS (1)
  - Product dose omission issue [Unknown]
